FAERS Safety Report 10253755 (Version 1)
Quarter: 2014Q2

REPORT INFORMATION
  Report Type: Spontaneous
  Country: MX (occurrence: MX)
  Receive Date: 20140623
  Receipt Date: 20140623
  Transmission Date: 20141212
  Serious: Yes (Death, Hospitalization)
  Sender: FDA-Public Use
  Company Number: MX-PFIZER INC-2014171436

PATIENT
  Age: 69 Year
  Sex: Female

DRUGS (7)
  1. CELEBREX [Suspect]
     Dosage: UNK
  2. CADUET [Suspect]
     Dosage: UNK
  3. LIPITOR [Suspect]
     Dosage: UNK
  4. NORVAS [Suspect]
     Dosage: UNK
  5. INSULIN GLARGINE [Concomitant]
     Indication: DIABETES MELLITUS
     Dosage: 30 IU, 1X/DAY (AM)
  6. INSULIN GLARGINE [Concomitant]
     Dosage: 28 IU, 1X/DAY (PM)
  7. INSULIN LISPRO [Concomitant]
     Indication: DIABETES MELLITUS
     Dosage: 5 IU, 1X/DAY

REACTIONS (3)
  - Myocardial infarction [Fatal]
  - Diabetes mellitus [Fatal]
  - Diabetic complication [Fatal]
